FAERS Safety Report 6132580-2 (Version None)
Quarter: 2009Q1

REPORT INFORMATION
  Report Type: 
  Country: None (occurrence: None)
  Receive Date: 20090324
  Receipt Date: 20090309
  Transmission Date: 20090719
  Serious: Yes (Other)
  Sender: FDA-Public Use
  Company Number: 2009000738

PATIENT
  Age: 65 Year
  Sex: Female

DRUGS (5)
  1. TARCEVA [Suspect]
     Indication: NON-SMALL CELL LUNG CANCER
     Dosage: 150 MG, QD, ORAL
     Route: 048
     Dates: start: 20081119
  2. DERMOL (DERMOL) [Concomitant]
  3. ACETAMINOPHEN [Concomitant]
  4. VISCOTEARS (CARBOMER) [Concomitant]
  5. LOPERAMIDE [Concomitant]

REACTIONS (9)
  - DYSAESTHESIA [None]
  - EYE PAIN [None]
  - FATIGUE [None]
  - FEELING HOT [None]
  - MALAISE [None]
  - ONYCHALGIA [None]
  - PAIN [None]
  - PARAESTHESIA [None]
  - RASH [None]
